FAERS Safety Report 12760610 (Version 1)
Quarter: 2016Q3

REPORT INFORMATION
  Report Type: Spontaneous
  Country: US (occurrence: US)
  Receive Date: 20160919
  Receipt Date: 20160919
  Transmission Date: 20161109
  Serious: No
  Sender: FDA-Public Use
  Company Number: US-ENDO PHARMACEUTICALS INC.-2016-000153

PATIENT
  Sex: Male
  Weight: 90.8 kg

DRUGS (2)
  1. AMITRIPTYLINE HCL 100MG (AMITRIPTYLINE HYDROCHLORIDE) (100 MILLIGRAM, TABLETS) (AMITRIPTYLINE HYDROCHLORIDE) [Suspect]
     Active Substance: AMITRIPTYLINE
     Indication: DEPRESSION
     Route: 048
     Dates: start: 2015
  2. AMITRIPTYLINE HCL 100MG (AMITRIPTYLINE HYDROCHLORIDE) (100 MILLIGRAM, TABLETS) (AMITRIPTYLINE HYDROCHLORIDE) [Suspect]
     Active Substance: AMITRIPTYLINE
     Indication: SLEEP DISORDER

REACTIONS (4)
  - Paranoia [Not Recovered/Not Resolved]
  - Off label use [Not Recovered/Not Resolved]
  - Poor quality sleep [Not Recovered/Not Resolved]
  - Depression [Not Recovered/Not Resolved]

NARRATIVE: CASE EVENT DATE: 2015
